FAERS Safety Report 5034325-6 (Version None)
Quarter: 2006Q2

REPORT INFORMATION
  Report Type: 
  Country: None (occurrence: None)
  Receive Date: 20060518
  Receipt Date: 20050623
  Transmission Date: 20061013
  Serious: Yes (Other)
  Sender: FDA-Public Use
  Company Number: 2005091689

PATIENT
  Age: 25 Year
  Sex: Female
  Weight: 112.0385 kg

DRUGS (2)
  1. DEPO-PROVERA [Suspect]
     Dosage: SEE IMAGE
     Route: 030
     Dates: start: 20000105, end: 20000105
  2. DEPO-PROVERA [Suspect]
     Dosage: SEE IMAGE
     Route: 030
     Dates: start: 20050611, end: 20060511

REACTIONS (3)
  - ALOPECIA [None]
  - HEADACHE [None]
  - WEIGHT INCREASED [None]
